FAERS Safety Report 10271231 (Version 1)
Quarter: 2014Q1

REPORT INFORMATION
  Report Type: Spontaneous
  Country: US (occurrence: None)
  Receive Date: 20140306
  Receipt Date: 20140306
  Transmission Date: 20141002
  Serious: Yes (Hospitalization)
  Sender: FDA-Public Use
  Company Number: 163-21880-13081522

PATIENT
  Age: 64 Year
  Sex: Female
  Weight: 60.33 kg

DRUGS (1)
  1. REVLIMID (LENALIDOMIDE) (10 MILLIGRAM, CAPSULES) [Suspect]
     Indication: MYELODYSPLASTIC SYNDROME
     Dosage: 10 MG, 21 IN 21 D, PO
     Route: 048
     Dates: start: 20130701, end: 20130712

REACTIONS (4)
  - Diverticulitis [None]
  - Constipation [None]
  - Pyrexia [None]
  - White blood cell count decreased [None]
